FAERS Safety Report 16716605 (Version 2)
Quarter: 2019Q4

REPORT INFORMATION
  Report Type: Spontaneous
  Country: BR (occurrence: BR)
  Receive Date: 20190819
  Receipt Date: 20191126
  Transmission Date: 20200122
  Serious: Yes (Hospitalization, Other)
  Sender: FDA-Public Use
  Company Number: BR-ASTRAZENECA-2019SF16882

PATIENT
  Age: 84 Year
  Sex: Female

DRUGS (4)
  1. PURAN [Concomitant]
     Active Substance: LEVOTHYROXINE SODIUM
  2. ESCITALOPRAM [Suspect]
     Active Substance: ESCITALOPRAM OXALATE
     Dosage: 60.0MG UNKNOWN
     Route: 065
  3. SEROQUEL [Suspect]
     Active Substance: QUETIAPINE FUMARATE
     Dosage: 50.0MG UNKNOWN
     Route: 048
  4. CONCOR [Concomitant]
     Active Substance: BISOPROLOL FUMARATE

REACTIONS (2)
  - Ankle fracture [Recovered/Resolved]
  - Dementia Alzheimer^s type [Not Recovered/Not Resolved]

NARRATIVE: CASE EVENT DATE: 2015
